FAERS Safety Report 9639256 (Version 2)
Quarter: 2014Q1

REPORT INFORMATION
  Report Type: Spontaneous
  Country: US (occurrence: None)
  Receive Date: 20131010
  Receipt Date: 20131120
  Transmission Date: 20141002
  Serious: Yes (Other)
  Sender: FDA-Public Use
  Company Number: GAM-287-13-US

PATIENT
  Age: 25 Year
  Sex: Female
  Weight: 98 kg

DRUGS (2)
  1. OCTAGAM [Suspect]
     Indication: IMMUNODEFICIENCY COMMON VARIABLE
     Route: 042
     Dates: start: 20130919
  2. INSULIN [Concomitant]

REACTIONS (3)
  - Hypoglycaemia [None]
  - Diabetic ketoacidosis [None]
  - Blood glucose false positive [None]
